FAERS Safety Report 22642813 (Version 2)
Quarter: 2025Q4

REPORT INFORMATION
  Report Type: Spontaneous
  Country: EU (occurrence: EU)
  Receive Date: 20230627
  Receipt Date: 20251127
  Transmission Date: 20260117
  Serious: Yes (Hospitalization, Other)
  Sender: AUROBINDO
  Company Number: EU-ACRAF SpA-2023-031144

PATIENT
  Age: 58 Year
  Sex: Male

DRUGS (1)
  1. IBUPROFEN [Suspect]
     Active Substance: IBUPROFEN
     Indication: Headache
     Dosage: UNK
     Route: 065

REACTIONS (2)
  - Anaphylactic shock [Recovered/Resolved with Sequelae]
  - Medication error [Recovered/Resolved with Sequelae]

NARRATIVE: CASE EVENT DATE: 20210101
